FAERS Safety Report 10364084 (Version 2)
Quarter: 2015Q1

REPORT INFORMATION
  Report Type: Spontaneous
  Country: AR (occurrence: AR)
  Receive Date: 20140806
  Receipt Date: 20150203
  Transmission Date: 20150720
  Serious: Yes (Hospitalization, Other)
  Sender: FDA-Public Use
  Company Number: AR-AMGEN-ARGSP2014058719

PATIENT
  Age: 53 Year
  Sex: Female

DRUGS (2)
  1. ARTRAIT                            /00113801/ [Suspect]
     Active Substance: METHOTREXATE SODIUM
     Indication: RHEUMATOID ARTHRITIS
     Dosage: 15 MG, WEEKLY
     Route: 065
     Dates: start: 2002
  2. ENBREL [Suspect]
     Active Substance: ETANERCEPT
     Indication: RHEUMATOID ARTHRITIS
     Dosage: 25 MG, 2X/WEEK
     Route: 065
     Dates: start: 20020610

REACTIONS (19)
  - Gastric ulcer [Not Recovered/Not Resolved]
  - Peripheral swelling [Recovered/Resolved]
  - Ligament sprain [Not Recovered/Not Resolved]
  - Antiphospholipid syndrome [Unknown]
  - Gastritis [Not Recovered/Not Resolved]
  - Hiatus hernia [Not Recovered/Not Resolved]
  - Arthropathy [Unknown]
  - Bronchitis [Unknown]
  - Transient ischaemic attack [Recovered/Resolved]
  - Fibromyalgia [Not Recovered/Not Resolved]
  - Gastric disorder [Not Recovered/Not Resolved]
  - Cerebrovascular accident [Recovered/Resolved]
  - Limb injury [Recovered/Resolved]
  - Duodenal ulcer [Not Recovered/Not Resolved]
  - Panic attack [Recovered/Resolved]
  - Pain [Recovered/Resolved]
  - Fall [Not Recovered/Not Resolved]
  - Oesophagitis [Not Recovered/Not Resolved]
  - Wound infection [Recovered/Resolved]

NARRATIVE: CASE EVENT DATE: 2005
